FAERS Safety Report 5456899-3 (Version None)
Quarter: 2007Q3

REPORT INFORMATION
  Report Type: 
  Country: None (occurrence: None)
  Receive Date: 20070918
  Receipt Date: 20070531
  Transmission Date: 20080115
  Serious: Yes (Hospitalization)
  Sender: FDA-Public Use
  Company Number: US-ASTRAZENECA-2006UW27472

PATIENT
  Age: 15755 Day
  Sex: Female
  Weight: 61.4 kg

DRUGS (4)
  1. SEROQUEL [Suspect]
     Route: 048
     Dates: start: 20040518, end: 20051231
  2. HALDOL [Concomitant]
  3. RISPERDAL [Concomitant]
     Dates: start: 20031201, end: 20051201
  4. LITHIUM CARBONATE [Concomitant]

REACTIONS (2)
  - DIABETES MELLITUS [None]
  - PANCREATITIS [None]
